FAERS Safety Report 10189838 (Version 1)
Quarter: 2014Q2

REPORT INFORMATION
  Report Type: Spontaneous
  Country: JP (occurrence: JP)
  Receive Date: 20140522
  Receipt Date: 20140522
  Transmission Date: 20141212
  Serious: Yes (Other)
  Sender: FDA-Public Use
  Company Number: JP-009507513-1405JPN008252

PATIENT
  Age: 83 Year
  Sex: Male

DRUGS (2)
  1. MENESIT TABLETS - 100 [Suspect]
     Indication: PARKINSON^S DISEASE
     Dosage: DIVIDED DOSE FREQUENCY UNKNOWN
     Route: 048
  2. MENESIT TABLETS - 100 [Suspect]
     Dosage: DAILY DOSE UNKNOWN
     Route: 048
     Dates: start: 2004

REACTIONS (6)
  - Subdural haematoma [Unknown]
  - Subdural haematoma evacuation [Unknown]
  - Parkinson^s disease [Unknown]
  - Contusion [Unknown]
  - Fall [Unknown]
  - Gait disturbance [Unknown]
